FAERS Safety Report 15319837 (Version 2)
Quarter: 2018Q3

REPORT INFORMATION
  Report Type: Report from Study
  Country: None (occurrence: CO)
  Receive Date: 20180827
  Receipt Date: 20180928
  Transmission Date: 20181010
  Serious: Yes (Hospitalization)
  Sender: FDA-Public Use
  Company Number: CO-ABBVIE-18S-036-2465549-00

PATIENT
  Age: 32 Year
  Sex: Male
  Weight: 63 kg

DRUGS (1)
  1. ZEMPLAR [Suspect]
     Active Substance: PARICALCITOL
     Indication: HYPERPARATHYROIDISM SECONDARY
     Dosage: POSTDIALYSIS
     Route: 042
     Dates: start: 20171011, end: 20180412

REACTIONS (5)
  - Chest pain [Recovering/Resolving]
  - Lung infection [Recovering/Resolving]
  - Choking sensation [Recovering/Resolving]
  - Abdominal pain upper [Recovering/Resolving]
  - Cough [Recovering/Resolving]

NARRATIVE: CASE EVENT DATE: 201808
